FAERS Safety Report 13101297 (Version 1)
Quarter: 2017Q1

REPORT INFORMATION
  Report Type: Spontaneous
  Country: US (occurrence: US)
  Receive Date: 20170110
  Receipt Date: 20170110
  Transmission Date: 20170428
  Serious: Yes (Death, Hospitalization)
  Sender: FDA-Public Use
  Company Number: US-BAYER-2017-000893

PATIENT
  Age: 17 Year
  Sex: Female

DRUGS (4)
  1. BENZODIAZEPINE [Suspect]
     Active Substance: BENZODIAZEPINE
  2. IBUPROFEN. [Suspect]
     Active Substance: IBUPROFEN
  3. NAPROXEN SODIUM ({= 220 MG) [Suspect]
     Active Substance: NAPROXEN SODIUM
     Dosage: UNK
  4. DIPHENHYDRAMINE. [Suspect]
     Active Substance: DIPHENHYDRAMINE

REACTIONS (1)
  - Toxicity to various agents [Fatal]
